FAERS Safety Report 6368135-4 (Version None)
Quarter: 2009Q3

REPORT INFORMATION
  Report Type: 
  Country: None (occurrence: None)
  Receive Date: 20090915
  Receipt Date: 20090915
  Transmission Date: 20100115
  Serious: Yes (Death)
  Sender: FDA-Public Use
  Company Number: None

PATIENT
  Age: 78 Year
  Sex: Male
  Weight: 66.6788 kg

DRUGS (1)
  1. AVASTIN [Suspect]
     Indication: PROSTATE CANCER
     Dosage: 1090 MG OVER 30 MINUTES: INTRAVENOUS (NOT OTHERWISE SPEICIFIED)
     Route: 042
     Dates: start: 20081208, end: 20090420

REACTIONS (2)
  - AORTIC DISSECTION [None]
  - ISCHAEMIC STROKE [None]
